FAERS Safety Report 6980690-X (Version None)
Quarter: 2010Q3

REPORT INFORMATION
  Report Type: 
  Country: None (occurrence: None)
  Receive Date: 20100914
  Receipt Date: 20100802
  Transmission Date: 20110219
  Serious: Yes (Other)
  Sender: FDA-Public Use
  Company Number: US-BAYER-201012023NA

PATIENT
  Age: 21 Year
  Sex: Female
  Weight: 83 kg

DRUGS (6)
  1. OCELLA [Suspect]
     Indication: PRODUCT USED FOR UNKNOWN INDICATION
  2. YASMIN [Suspect]
     Indication: PRODUCT USED FOR UNKNOWN INDICATION
  3. YAZ [Suspect]
     Indication: PRODUCT USED FOR UNKNOWN INDICATION
     Dosage: PHARMACY RECORDS: YAZ WAS DISPENSED: 27 SEP 2006, 16 NOV 2006 AND 15 DEC 2006.
     Route: 048
     Dates: start: 20060901, end: 20070301
  4. BACTROBAN [Concomitant]
     Route: 065
     Dates: start: 19900101, end: 20100101
  5. AMOXICILLIN AND CLAVULANATE POTASSIUM [Concomitant]
     Route: 065
     Dates: start: 19900101, end: 20100101
  6. SULFAMETHOXAZOLE AND TRIMETHOPRIM [Concomitant]
     Dosage: PFS: 27-SEP-2006; PHARMACY RECORDS: DURING SEP 2006 -MAR-2007.
     Route: 065

REACTIONS (7)
  - ABDOMINAL PAIN [None]
  - CHOLECYSTITIS CHRONIC [None]
  - CHOLELITHIASIS [None]
  - DIARRHOEA [None]
  - MUSCLE SPASMS [None]
  - NAUSEA [None]
  - VOMITING [None]
